FAERS Safety Report 4453667-6 (Version None)
Quarter: 2004Q3

REPORT INFORMATION
  Report Type: 
  Country: None (occurrence: None)
  Receive Date: 20040902
  Receipt Date: 20040504
  Transmission Date: 20050211
  Serious: Yes (Other)
  Sender: FDA-Public Use
  Company Number: 200417790BWH

PATIENT
  Age: 24 Year
  Sex: Male

DRUGS (1)
  1. LEVITRA [Suspect]
     Dates: start: 20040429

REACTIONS (1)
  - ERECTION INCREASED [None]
